FAERS Safety Report 6435052-0 (Version None)
Quarter: 2009Q4

REPORT INFORMATION
  Report Type: 
  Country: None (occurrence: None)
  Receive Date: 20091110
  Receipt Date: 20091105
  Transmission Date: 20100525
  Serious: Yes (Death, Other)
  Sender: FDA-Public Use
  Company Number: PHHY2009DE48477

PATIENT
  Sex: Male

DRUGS (12)
  1. LEPONEX [Suspect]
     Dosage: 200 MG/DAY
     Route: 048
     Dates: end: 20071127
  2. LEPONEX [Suspect]
     Dosage: 125 MG/DAY
     Route: 048
     Dates: start: 20071128
  3. HALDOL [Suspect]
     Dosage: 2 MG/DAY
     Route: 048
     Dates: start: 20071130, end: 20071203
  4. HALDOL [Suspect]
     Dosage: 5 MG/DAY
     Route: 048
     Dates: start: 20071204, end: 20071227
  5. HALDOL [Suspect]
     Dosage: 7.5 MG/DAY
     Route: 048
     Dates: start: 20071228
  6. QUILONUM - SLOW RELEASE [Suspect]
     Dosage: 225 MG/DAY
     Route: 048
     Dates: start: 20071212, end: 20071229
  7. QUILONUM - SLOW RELEASE [Suspect]
     Dosage: 450 MG/DAY
     Route: 048
     Dates: start: 20071230
  8. UBRETID [Concomitant]
     Dosage: 7.5 MG/DAY
     Route: 048
     Dates: start: 20071219
  9. SAB [Concomitant]
     Dosage: 6 TABLET
     Route: 048
     Dates: start: 20071220
  10. ZOLPIDEM [Concomitant]
     Dosage: 10 MG/DAY
     Route: 048
     Dates: start: 20071130
  11. MIRTAZAPINE [Concomitant]
     Dosage: 15 MG/DAY
     Route: 048
     Dates: start: 20071203
  12. LORAZEPAM [Concomitant]
     Dosage: 1 MG/DAY
     Route: 048
     Dates: start: 20071220, end: 20071231

REACTIONS (10)
  - ANAEMIA [None]
  - ARRHYTHMIA [None]
  - ASPARTATE AMINOTRANSFERASE INCREASED [None]
  - BLOOD ALKALINE PHOSPHATASE INCREASED [None]
  - BLOOD CREATINE PHOSPHOKINASE INCREASED [None]
  - BLOOD LACTATE DEHYDROGENASE INCREASED [None]
  - CARDIOPULMONARY FAILURE [None]
  - FATIGUE [None]
  - PNEUMONIA [None]
  - PYREXIA [None]
